FAERS Safety Report 21968520 (Version 1)
Quarter: 2023Q1

REPORT INFORMATION
  Report Type: Spontaneous
  Country: IT (occurrence: IT)
  Receive Date: 20230208
  Receipt Date: 20230208
  Transmission Date: 20230417
  Serious: Yes (Hospitalization)
  Sender: FDA-Public Use
  Company Number: IT-BoehringerIngelheim-2023-BI-217518

PATIENT
  Sex: Female

DRUGS (1)
  1. PRAXBIND [Suspect]
     Active Substance: IDARUCIZUMAB
     Indication: Melaena
     Dosage: DOSE NOT REPORTED?FIRST ADMINISTRATION IN RESUSCITATION WARD?SECOND ADMINISTRATION IN MEDICINE WARD

REACTIONS (1)
  - Melaena [Unknown]
